FAERS Safety Report 22123500 (Version 1)
Quarter: 2023Q1

REPORT INFORMATION
  Report Type: Spontaneous
  Country: ES (occurrence: ES)
  Receive Date: 20230322
  Receipt Date: 20230322
  Transmission Date: 20230417
  Serious: Yes (Hospitalization)
  Sender: FDA-Public Use
  Company Number: None

PATIENT
  Age: 92 Year
  Sex: Female

DRUGS (3)
  1. CIPROFLOXACIN HYDROCHLORIDE [Suspect]
     Active Substance: CIPROFLOXACIN HYDROCHLORIDE
     Indication: Respiratory tract infection
     Dosage: 1000 MILLIGRAM DAILY; 1-0-1, 20 TABLETS
     Route: 065
     Dates: start: 20230123, end: 20230129
  2. FUROSEMIDE [Concomitant]
     Active Substance: FUROSEMIDE
     Indication: Cardiac failure
     Dosage: 30 TABLETS,  DOSE INCREASE TO 2 TABLETS PER DAY ON 01/23/23 (PREVIOUSLY 1 TABLET PER DAY)
     Route: 065
     Dates: start: 20230123
  3. FUROSEMIDE [Concomitant]
     Active Substance: FUROSEMIDE
     Dates: start: 202004

REACTIONS (1)
  - Tubulointerstitial nephritis [Recovering/Resolving]

NARRATIVE: CASE EVENT DATE: 20230131
